FAERS Safety Report 7643107-8 (Version None)
Quarter: 2011Q3

REPORT INFORMATION
  Report Type: 
  Country: None (occurrence: None)
  Receive Date: 20110728
  Receipt Date: 20110721
  Transmission Date: 20111222
  Serious: Yes (Death, Hospitalization)
  Sender: FDA-Public Use
  Company Number: IT-BRISTOL-MYERS SQUIBB COMPANY-15569288

PATIENT
  Age: 64 Year
  Sex: Female

DRUGS (4)
  1. ERBITUX [Suspect]
     Indication: EPIGLOTTIC CARCINOMA
     Dosage: 712MG 1STC 18NOV10-UK 445MG 2NDC 25NOV10-UK 445MG 3RDC 2DEC10-UK 445MG (1IN1WK) 9DEC10
     Route: 042
     Dates: start: 20101118
  2. CISPLATIN [Concomitant]
     Indication: EPIGLOTTIC CARCINOMA
     Dosage: THERAPY DATES:6OCT10,28OCT10
     Dates: start: 20100913
  3. FLUOROURACIL [Concomitant]
     Indication: EPIGLOTTIC CARCINOMA
     Dosage: CONT INF FOR 5D(1 IN 3WK) ON 13SEP10,6OCT10,28OCT10
     Route: 042
     Dates: start: 20100913
  4. TAXOTERE [Concomitant]
     Indication: EPIGLOTTIC CARCINOMA
     Dosage: THERAPY DATES:6OCT10,28OCT10
     Dates: start: 20100913

REACTIONS (3)
  - SKIN TOXICITY [None]
  - MUCOSAL INFLAMMATION [None]
  - PANCYTOPENIA [None]
